FAERS Safety Report 18035596 (Version 1)
Quarter: 2020Q3

REPORT INFORMATION
  Report Type: Spontaneous
  Country: CA (occurrence: CA)
  Receive Date: 20200717
  Receipt Date: 20200717
  Transmission Date: 20201103
  Serious: Yes (Hospitalization, Other)
  Sender: FDA-Public Use
  Company Number: CA-ACCORD-190563

PATIENT
  Age: 65 Year
  Sex: Female

DRUGS (28)
  1. FUROSEMIDE. [Suspect]
     Active Substance: FUROSEMIDE
     Indication: PRODUCT USED FOR UNKNOWN INDICATION
     Dosage: 2 EVERY 1 DAYS
  2. COSENTYX [Suspect]
     Active Substance: SECUKINUMAB
     Indication: PSORIASIS
     Dosage: 1 EVERY 1 MONTHS
  3. CICLOSPORIN [Suspect]
     Active Substance: CYCLOSPORINE
     Indication: PRODUCT USED FOR UNKNOWN INDICATION
  4. PULMICORT TURBUHALER [Concomitant]
     Active Substance: BUDESONIDE
  5. SALICYLATE SODIUM/SALICYLIC ACID/SALICYLIC ACID TRIETHANOLAMINE [Concomitant]
     Active Substance: SODIUM SALICYLATE
  6. CLOBETASOL [Concomitant]
     Active Substance: CLOBETASOL
  7. BETAMETHASONE. [Concomitant]
     Active Substance: BETAMETHASONE
  8. IODINE. [Suspect]
     Active Substance: IODINE
     Indication: PRODUCT USED FOR UNKNOWN INDICATION
  9. FORMOTEROL [Concomitant]
     Active Substance: FORMOTEROL
  10. BETAMETHASONE. [Concomitant]
     Active Substance: BETAMETHASONE
  11. ONE ALPHA [Concomitant]
     Active Substance: ALFACALCIDOL
  12. PARACETAMOL [Concomitant]
     Active Substance: ACETAMINOPHEN
  13. ATORVASTATIN/ATORVASTATIN CALCIUM [Suspect]
     Active Substance: ATORVASTATIN CALCIUM
     Indication: PRODUCT USED FOR UNKNOWN INDICATION
  14. SYNTHROID [Concomitant]
     Active Substance: LEVOTHYROXINE SODIUM
  15. DOMPERIDONE [Concomitant]
     Active Substance: DOMPERIDONE
  16. ACITRETIN. [Concomitant]
     Active Substance: ACITRETIN
  17. NOVORAPID [Concomitant]
     Active Substance: INSULIN ASPART
     Route: 058
  18. QUETIAPINE. [Suspect]
     Active Substance: QUETIAPINE
     Indication: PRODUCT USED FOR UNKNOWN INDICATION
     Dosage: 2 EVERY 1 DAYS
  19. METHOTREXATE. [Suspect]
     Active Substance: METHOTREXATE
     Indication: PRODUCT USED FOR UNKNOWN INDICATION
  20. TOCOPHEROL/TOCOPHERYL ACETATE/TOCOPHERYL ACID SUCCINATE/TOCOPHERYL NICOTINATE [Suspect]
     Active Substance: TOCOPHEROL
     Indication: PRODUCT USED FOR UNKNOWN INDICATION
     Dosage: 1 EVERY 1 WEEKS
  21. HYDROXYZINE [Concomitant]
     Active Substance: HYDROXYZINE HYDROCHLORIDE
  22. DILTIAZEM. [Concomitant]
     Active Substance: DILTIAZEM
  23. LAMISIL [Suspect]
     Active Substance: TERBINAFINE HYDROCHLORIDE
     Indication: PRODUCT USED FOR UNKNOWN INDICATION
  24. ERGOCALCIFEROL. [Suspect]
     Active Substance: ERGOCALCIFEROL
     Indication: PRODUCT USED FOR UNKNOWN INDICATION
     Dosage: 1 EVERY 1 WEEKS
  25. PREGABALIN. [Concomitant]
     Active Substance: PREGABALIN
  26. OTEZLA [Concomitant]
     Active Substance: APREMILAST
  27. NOVOLIN GE NPH [Concomitant]
     Active Substance: INSULIN BEEF
     Route: 058
  28. CLONIDINE. [Concomitant]
     Active Substance: CLONIDINE

REACTIONS (23)
  - Heart rate decreased [Not Recovered/Not Resolved]
  - Skin discolouration [Not Recovered/Not Resolved]
  - Incorrect dosage administered [Unknown]
  - Skin atrophy [Not Recovered/Not Resolved]
  - Anxiety [Not Recovered/Not Resolved]
  - Blood pressure decreased [Not Recovered/Not Resolved]
  - Contusion [Not Recovered/Not Resolved]
  - Peripheral swelling [Not Recovered/Not Resolved]
  - Dyspnoea [Not Recovered/Not Resolved]
  - Dysuria [Not Recovered/Not Resolved]
  - Fall [Unknown]
  - Headache [Not Recovered/Not Resolved]
  - Hypoglycaemia [Not Recovered/Not Resolved]
  - Pain in extremity [Not Recovered/Not Resolved]
  - Syncope [Not Recovered/Not Resolved]
  - Weight decreased [Not Recovered/Not Resolved]
  - Poor quality sleep [Not Recovered/Not Resolved]
  - Sensory disturbance [Not Recovered/Not Resolved]
  - Wrong technique in device usage process [Unknown]
  - Gait inability [Not Recovered/Not Resolved]
  - Renal disorder [Not Recovered/Not Resolved]
  - Back pain [Not Recovered/Not Resolved]
  - Infection [Not Recovered/Not Resolved]
